FAERS Safety Report 17761195 (Version 1)
Quarter: 2020Q2

REPORT INFORMATION
  Report Type: Spontaneous
  Country: FR (occurrence: FR)
  Receive Date: 20200508
  Receipt Date: 20200508
  Transmission Date: 20200714
  Serious: Yes (Hospitalization)
  Sender: FDA-Public Use
  Company Number: FR-PFIZER INC-2020181708

PATIENT
  Age: 58 Year
  Sex: Male
  Weight: 82 kg

DRUGS (19)
  1. DIOSMECTITE [Concomitant]
     Active Substance: MONTMORILLONITE
     Dosage: UNK, 3X/DAY, IF DIARRHEA
     Route: 048
  2. PANTOPRAZOLE [Concomitant]
     Active Substance: PANTOPRAZOLE
     Dosage: 40 MG, 1X/DAY
     Route: 048
  3. PERINDOPRIL [Concomitant]
     Active Substance: PERINDOPRIL
     Dosage: 4 MG, 1X/DAY
     Route: 048
  4. FLUOROURACIL. [Suspect]
     Active Substance: FLUOROURACIL
     Indication: RECTAL ADENOCARCINOMA
     Dosage: UNK
     Route: 042
     Dates: start: 20191029, end: 20200318
  5. SKENAN [Concomitant]
     Active Substance: MORPHINE SULFATE
     Dosage: 40 MG, 1X/DAY
     Route: 048
  6. PRIMPERAN [Concomitant]
     Active Substance: METOCLOPRAMIDE HYDROCHLORIDE
     Dosage: 10 MG, 3X/DAY, IF NAUSEA
     Route: 048
  7. SERESTA [Concomitant]
     Active Substance: OXAZEPAM
     Dosage: UNK, 1X/DAY, IF ANXIETY
     Route: 048
  8. ACTISKENAN [Concomitant]
     Active Substance: MORPHINE SULFATE
     Dosage: 5 MG, AS NEEDED, (5MG UP TO 6X / D IF PAIN)
     Route: 048
  9. IRINOTECAN HCL [Suspect]
     Active Substance: IRINOTECAN HYDROCHLORIDE
     Indication: RECTAL ADENOCARCINOMA
     Dosage: UNK
     Route: 042
     Dates: start: 20191029, end: 20200318
  10. PARACETAMOL [Concomitant]
     Active Substance: ACETAMINOPHEN
     Dosage: 1 G, AS NEEDED, (1G 1X / 6H IF PAIN)
     Route: 048
  11. BINOCRIT [Concomitant]
     Active Substance: ERYTHROPOIETIN
     Dosage: 1 DF, WEEKLY, (30 000 UI/0,75 ML)
     Route: 058
  12. ELVORINE [Suspect]
     Active Substance: LEUCOVORIN CALCIUM
     Indication: RECTAL ADENOCARCINOMA
     Dosage: UNK
     Route: 042
     Dates: start: 20191029, end: 20200318
  13. IMOVANE [Concomitant]
     Active Substance: ZOPICLONE
     Dosage: 7.5 MG, AS NEEDED, (7.5MG IF INSOMNIA)
     Route: 048
  14. EMLA [Concomitant]
     Active Substance: LIDOCAINE\PRILOCAINE
     Dosage: 2 DF, WEEKLY
     Route: 062
  15. PROPRANOLOL [Concomitant]
     Active Substance: PROPRANOLOL HYDROCHLORIDE
     Dosage: 160 MG, 1X/DAY
     Route: 048
  16. CETUXIMAB. [Suspect]
     Active Substance: CETUXIMAB
     Indication: RECTAL ADENOCARCINOMA
     Dosage: UNK
     Route: 042
     Dates: start: 20191029, end: 20200318
  17. ZOPHREN [ONDANSETRON] [Concomitant]
     Active Substance: ONDANSETRON
     Dosage: 8 MG, AS NEEDED, (8MG IF NAUSEA DESPITE PRIMPERAN)
     Route: 048
  18. DUPHALAC [Concomitant]
     Active Substance: LACTULOSE
     Dosage: UNK UNK, 3X/DAY, (3X / D DEPENDING ON THE TRANSIT)
     Route: 048
  19. KARDEGIC [Concomitant]
     Active Substance: ASPIRIN DL-LYSINE
     Dosage: 75 MG, 1X/DAY
     Route: 048

REACTIONS (1)
  - Osteitis [Not Recovered/Not Resolved]

NARRATIVE: CASE EVENT DATE: 20200323
